FAERS Safety Report 7772126-6 (Version None)
Quarter: 2011Q3

REPORT INFORMATION
  Report Type: 
  Country: None (occurrence: None)
  Receive Date: 20110922
  Receipt Date: 20110124
  Transmission Date: 20111222
  Serious: No
  Sender: FDA-Public Use
  Company Number: US-ASTRAZENECA-2011SE04238

PATIENT
  Age: 37 Year
  Sex: Female

DRUGS (3)
  1. SEROQUEL [Suspect]
     Dosage: 2-25 MG DURING THE DAY AND 5-25 MG AT BEDTIME
     Route: 048
     Dates: start: 20101101
  2. AMBIEN [Concomitant]
  3. SEROQUEL [Suspect]
     Indication: BIPOLAR DISORDER
     Route: 048
     Dates: start: 20100101

REACTIONS (4)
  - NIGHTMARE [None]
  - ABNORMAL DREAMS [None]
  - INSOMNIA [None]
  - DRUG INEFFECTIVE FOR UNAPPROVED INDICATION [None]
